FAERS Safety Report 15886512 (Version 2)
Quarter: 2019Q1

REPORT INFORMATION
  Report Type: Report from Study
  Country: MX (occurrence: MX)
  Receive Date: 20190129
  Receipt Date: 20190129
  Transmission Date: 20190417
  Serious: Yes (Other)
  Sender: FDA-Public Use
  Company Number: PHHY2019MX020018

PATIENT
  Age: 79 Year
  Sex: Female
  Weight: 79 kg

DRUGS (3)
  1. CO-DIOVAN [Suspect]
     Active Substance: HYDROCHLOROTHIAZIDE\VALSARTAN
     Indication: PRODUCT USED FOR UNKNOWN INDICATION
     Dosage: UNK
     Route: 065
     Dates: start: 2015, end: 2015
  2. DIOVAN [Suspect]
     Active Substance: VALSARTAN
     Indication: HYPERTENSION
     Dosage: 0.5 DF, BID 0.5 IN THE MORNING AND 0.5 IN THE EVENING)
     Route: 048
     Dates: start: 2013
  3. LOSARTAN. [Suspect]
     Active Substance: LOSARTAN
     Indication: HYPERTENSION
     Dosage: UNK
     Route: 048
     Dates: start: 2015, end: 2015

REACTIONS (6)
  - Cardiac failure [Unknown]
  - Inappropriate schedule of product administration [Unknown]
  - Renal failure [Not Recovered/Not Resolved]
  - Blood pressure inadequately controlled [Unknown]
  - Product prescribing error [Unknown]
  - Wrong technique in product usage process [Unknown]

NARRATIVE: CASE EVENT DATE: 201510
